FAERS Safety Report 5622097-3 (Version None)
Quarter: 2008Q1

REPORT INFORMATION
  Report Type: 
  Country: None (occurrence: None)
  Receive Date: 20080201
  Receipt Date: 20080118
  Transmission Date: 20080703
  Serious: Yes (Congenital Anomaly)
  Sender: FDA-Public Use
  Company Number: B0505180A

PATIENT

DRUGS (4)
  1. DIAZEPAM [Suspect]
     Dosage: TRANSPLACENTARY
     Route: 064
  2. PAROXETINE HCL [Suspect]
     Dosage: TRANSPLACENTARY
     Route: 064
  3. MORPHINE [Suspect]
     Dosage: TRANSPLACENTARY
     Route: 064
  4. DEXTROPROPOXYPHENE (FORMULATION UNKNOWN) (DEXTROPROPOXYPHENE) [Suspect]
     Dosage: TRANSPLACENTARY
     Route: 064

REACTIONS (4)
  - ANAL ATRESIA [None]
  - CONGENITAL ANOMALY [None]
  - DRUG EXPOSURE DURING PREGNANCY [None]
  - HYPOSPADIAS [None]
